FAERS Safety Report 10211580 (Version 9)
Quarter: 2020Q2

REPORT INFORMATION
  Report Type: Spontaneous
  Country: US (occurrence: US)
  Receive Date: 20140602
  Receipt Date: 20200430
  Transmission Date: 20200713
  Serious: Yes (Disabling)
  Sender: FDA-Public Use
  Company Number: US-PFIZER INC-2014150440

PATIENT
  Age: 51 Year
  Sex: Female
  Weight: 73 kg

DRUGS (2)
  1. RELPAX [Suspect]
     Active Substance: ELETRIPTAN HYDROBROMIDE
     Indication: MIGRAINE
     Dosage: 40 MG, AS NEEDED (IF THE HEADACHE PERSISTS, THEN 1 TABLET 3 HOURS LATER)
     Route: 048
     Dates: start: 2004
  2. RELPAX [Suspect]
     Active Substance: ELETRIPTAN HYDROBROMIDE
     Dosage: 40 MG, AS NEEDED (IF THE HEADACHE PERSISTS, THEN 1 TABLET 3 HOURS LATER)
     Route: 048

REACTIONS (9)
  - Spinal disorder [Unknown]
  - Back disorder [Unknown]
  - Intentional product misuse [Unknown]
  - Headache [Unknown]
  - Drug ineffective [Unknown]
  - Weight increased [Unknown]
  - Back pain [Unknown]
  - Gait disturbance [Unknown]
  - Osteoarthritis [Unknown]
